FAERS Safety Report 9031380 (Version 2)
Quarter: 2014Q1

REPORT INFORMATION
  Report Type: Spontaneous
  Country: US (occurrence: US)
  Receive Date: 20130124
  Receipt Date: 20140130
  Transmission Date: 20141002
  Serious: No
  Sender: FDA-Public Use
  Company Number: US-PFIZER INC-2013030774

PATIENT
  Age: 56 Year
  Sex: Female
  Weight: 118 kg

DRUGS (11)
  1. LYRICA [Suspect]
     Indication: NEUROPATHY PERIPHERAL
     Dosage: 50 MG, 1X/DAY
     Route: 048
     Dates: start: 201209
  2. LYRICA [Suspect]
     Indication: FIBROMYALGIA
     Dosage: 75 MG, 1X/DAY
     Route: 048
  3. LYRICA [Suspect]
     Dosage: 100 MG, 1X/DAY
     Route: 048
  4. LYRICA [Suspect]
     Dosage: 75 MG, 1X/DAY
     Route: 048
     Dates: end: 20130112
  5. LIPITOR [Concomitant]
     Dosage: UNK
  6. LOPID [Concomitant]
     Dosage: UNK
  7. GLYBURIDE [Concomitant]
     Dosage: UNK
  8. METFORMIN [Concomitant]
     Dosage: UNK
  9. DICLOFENAC [Concomitant]
     Dosage: UNK
  10. HYDROCHLOROTHIAZIDE [Concomitant]
     Dosage: UNK
  11. PRAVASTATIN [Concomitant]
     Dosage: UNK

REACTIONS (1)
  - Hypoaesthesia [Unknown]
